FAERS Safety Report 4357683-4 (Version None)
Quarter: 2004Q2

REPORT INFORMATION
  Report Type: 
  Country: None (occurrence: None)
  Receive Date: 20040513
  Receipt Date: 20030924
  Transmission Date: 20050107
  Serious: Yes (Other)
  Sender: FDA-Public Use
  Company Number: BE-ROCHE-347585

PATIENT
  Age: 48 Year
  Sex: Male
  Weight: 93.2 kg

DRUGS (16)
  1. CELLCEPT [Suspect]
     Route: 065
  2. RECORMON [Suspect]
     Route: 065
     Dates: start: 20000410, end: 20000412
  3. RECORMON [Suspect]
     Route: 065
     Dates: start: 20000412, end: 20000503
  4. METHYLPREDNISOLONE [Concomitant]
  5. ATG [Concomitant]
  6. CYCLOSPORINE [Concomitant]
     Dosage: DOSAGE WAS SUBSEQUENTLY ADAPTED ACCORDING TO SERUM LEVELS BETWEEN 200 - 250 NG/ML.
  7. IRON SUPPLEMENT [Concomitant]
     Indication: ANAEMIA
  8. PLENDIL [Concomitant]
  9. FRAXIPARINE [Concomitant]
  10. DIFLUCAN [Concomitant]
  11. LOSEC [Concomitant]
  12. FERO-GRADUMET [Concomitant]
  13. PREDNISOLONE [Concomitant]
  14. CIPROFLOXACIN [Concomitant]
  15. INSULIN [Concomitant]
  16. CORDARONE [Concomitant]

REACTIONS (2)
  - APLASIA PURE RED CELL [None]
  - URINARY TRACT INFECTION ENTEROCOCCAL [None]
